FAERS Safety Report 12502551 (Version 2)
Quarter: 2016Q3

REPORT INFORMATION
  Report Type: Spontaneous
  Country: DE (occurrence: DE)
  Receive Date: 20160627
  Receipt Date: 20160818
  Transmission Date: 20161109
  Serious: Yes (Other)
  Sender: FDA-Public Use
  Company Number: DE-009507513-1606DEU011287

PATIENT
  Age: 72 Year
  Sex: Male

DRUGS (8)
  1. FOLSAN [Concomitant]
     Active Substance: FOLIC ACID
     Indication: FOLATE DEFICIENCY
     Dosage: 5 MG, QD, FOR YEARS
  2. SIMVAHEXAL [Concomitant]
     Active Substance: SIMVASTATIN
     Dosage: 20 MG, QD
  3. CAPTOHEXAL [Concomitant]
     Active Substance: CAPTOPRIL
     Indication: HYPERTENSION
     Dosage: 12.5 MG, BID, FOR YEARS
  4. XARELTO [Concomitant]
     Active Substance: RIVAROXABAN
     Dosage: 20 MG
     Dates: start: 20160427
  5. PANTOPRAZOLE [Concomitant]
     Active Substance: PANTOPRAZOLE SODIUM
     Indication: PROPHYLAXIS
     Dosage: 20 MG, BID, FOR YEARS
  6. PREDNISOLONE. [Concomitant]
     Active Substance: PREDNISOLONE
     Indication: RHEUMATOID ARTHRITIS
     Dosage: 10 MG, FOR YEARS
  7. ARCOXIA 90 MG FILMTABLETTEN [Concomitant]
     Indication: RHEUMATOID ARTHRITIS
     Dosage: 90 MG, FOR YEARS
  8. KEYTRUDA [Suspect]
     Active Substance: PEMBROLIZUMAB
     Indication: MALIGNANT MELANOMA
     Dosage: 2 MG/KG, TIW
     Dates: start: 20150826, end: 20160404

REACTIONS (5)
  - Myelodysplastic syndrome [Unknown]
  - Thrombocytopenia [Unknown]
  - Anaemia [Unknown]
  - Dyspnoea [Unknown]
  - Pancytopenia [Unknown]

NARRATIVE: CASE EVENT DATE: 20160427
